FAERS Safety Report 10243719 (Version 1)
Quarter: 2014Q2

REPORT INFORMATION
  Report Type: Spontaneous
  Country: US (occurrence: None)
  Receive Date: 20140616
  Receipt Date: 20140616
  Transmission Date: 20141212
  Serious: Yes (Hospitalization)
  Sender: FDA-Public Use
  Company Number: None

PATIENT
  Age: 64 Year
  Sex: Female
  Weight: 71.4 kg

DRUGS (13)
  1. RIBAVIRIN [Suspect]
     Indication: HEPATITIS C
     Route: 048
     Dates: start: 20140218
  2. SOFOSBUVIR [Suspect]
     Indication: HEPATITIS C
     Route: 048
     Dates: start: 20140218
  3. IRON [Concomitant]
  4. KRISTALOSE [Concomitant]
  5. NITROGLYCERIN [Concomitant]
  6. IMDUR [Concomitant]
  7. RAMIPRIL [Concomitant]
  8. ZOLOFT [Concomitant]
  9. FUROSEMIDE [Concomitant]
  10. LANTUS [Concomitant]
  11. PROGRAF [Concomitant]
  12. VITAMIN D3 [Concomitant]
  13. CENTRUM [Concomitant]

REACTIONS (2)
  - Blood glucose increased [None]
  - Anaemia [None]
